FAERS Safety Report 8556042-8 (Version None)
Quarter: 2012Q3

REPORT INFORMATION
  Report Type: 
  Country: None (occurrence: None)
  Receive Date: 20120719
  Receipt Date: 20120706
  Transmission Date: 20120928
  Serious: Yes (Hospitalization, Other)
  Sender: FDA-Public Use
  Company Number: DSU-2012-05458

PATIENT
  Age: 38 Year
  Sex: Female
  Weight: 86 kg

DRUGS (14)
  1. FLAGYL [Concomitant]
  2. WELCHOL [Suspect]
     Indication: PRODUCT USED FOR UNKNOWN INDICATION
     Dosage: 1875 MG (625 MG,TID), PER ORAL; 1250 MG (625 MG, BID, PER ORAL
     Route: 048
  3. HUMIRA [Suspect]
     Indication: CROHN'S DISEASE
     Dosage: 40 MG (40 MG, BIW), SUBCUTANEOUS;
     Dates: start: 20090101, end: 20100101
  4. HUMIRA [Suspect]
     Indication: CROHN'S DISEASE
     Dosage: 40 MG (40 MG, BIW), SUBCUTANEOUS;
     Dates: start: 20100101, end: 20100801
  5. HUMIRA [Suspect]
     Indication: CROHN'S DISEASE
     Dosage: 40 MG (40 MG, BIW), SUBCUTANEOUS;
     Dates: start: 20101105
  6. PREDNISONE [Suspect]
     Dosage: UNK
     Dates: start: 20120201
  7. CYANOCOBALAMIN [Concomitant]
  8. FISH OIL [Concomitant]
  9. VANCOMYCIN [Suspect]
     Indication: INFECTION PROPHYLAXIS
     Dosage: UNK
     Dates: start: 20080101, end: 20080101
  10. FENTANYL [Concomitant]
  11. ZINC OXIDE [Concomitant]
  12. VIGRAN (ERGOCALCIFEROL, ASCORBIC ACID, PYRIDOXINE HYDROCHLORIDE, THIAM [Concomitant]
  13. MORPHINE [Concomitant]
  14. ZOLPIDEM TARTRATE [Concomitant]

REACTIONS (14)
  - CHOLELITHIASIS [None]
  - ARTHRITIS [None]
  - TREMOR [None]
  - ABSCESS [None]
  - ARTHRALGIA [None]
  - FUNGAL INFECTION [None]
  - CONJUNCTIVITIS [None]
  - FEMALE GENITAL TRACT FISTULA [None]
  - RECTAL ABSCESS [None]
  - CROHN'S DISEASE [None]
  - WEIGHT DECREASED [None]
  - PYODERMA GANGRENOSUM [None]
  - ADHESION [None]
  - FIBROMYALGIA [None]
